FAERS Safety Report 12177907 (Version 1)
Quarter: 2016Q1

REPORT INFORMATION
  Report Type: Spontaneous
  Country: US (occurrence: None)
  Receive Date: 20160314
  Receipt Date: 20160314
  Transmission Date: 20160526
  Serious: No
  Sender: FDA-Public Use
  Company Number: None

PATIENT
  Age: 70 Year
  Sex: Female

DRUGS (1)
  1. STELARA [Suspect]
     Active Substance: USTEKINUMAB
     Indication: PSORIASIS
     Dosage: STELARA 90MG EVERY 12 WEEKS SUBCUTANEOUSLY
     Route: 058
     Dates: start: 20110105

REACTIONS (2)
  - Inappropriate schedule of drug administration [None]
  - Drug ineffective [None]

NARRATIVE: CASE EVENT DATE: 201601
